FAERS Safety Report 7960030-X (Version None)
Quarter: 2011Q4

REPORT INFORMATION
  Report Type: 
  Country: None (occurrence: None)
  Receive Date: 20111206
  Receipt Date: 20111129
  Transmission Date: 20120403
  Serious: Yes (Hospitalization)
  Sender: FDA-Public Use
  Company Number: PHHY2011FR103336

PATIENT
  Sex: Female
  Weight: 92 kg

DRUGS (8)
  1. ENALAPRIL MALEATE AND HYDROCHLOROTHIAZIDE [Concomitant]
     Indication: HYPERTENSION
     Dosage: 1 DF, UNK
     Dates: start: 20000101
  2. ASPIRIN [Concomitant]
     Dosage: UNK UKN, UNK
  3. ALLOPURINOL [Concomitant]
     Indication: HYPERURICAEMIA
     Dosage: 1 DF, UNK
     Dates: start: 20000101
  4. STRUCTUM [Concomitant]
     Dosage: UNK UKN, UNK
  5. LEVOTHYROXINE SODIUM [Concomitant]
     Dosage: UNK UKN, UNK
  6. ESOMEPRAZOLE [Concomitant]
     Dosage: UNK UKN, UNK
  7. ZOLEDRONOC ACID [Suspect]
     Indication: OSTEOPOROTIC FRACTURE
     Dosage: UNK UKN, UNK
     Route: 042
     Dates: start: 20110715
  8. FENOFIBRATE [Concomitant]
     Indication: DYSLIPIDAEMIA
     Dosage: 1 DF, UNK
     Dates: start: 19900101

REACTIONS (3)
  - TACHYCARDIA [None]
  - PALPITATIONS [None]
  - MALAISE [None]
